FAERS Safety Report 7224503-X (Version None)
Quarter: 2011Q1

REPORT INFORMATION
  Report Type: 
  Country: None (occurrence: None)
  Receive Date: 20110113
  Receipt Date: 20110111
  Transmission Date: 20110831
  Serious: No
  Sender: FDA-Public Use
  Company Number: US-PFIZER INC-2011007888

PATIENT
  Sex: Female
  Weight: 78.912 kg

DRUGS (2)
  1. PRISTIQ [Suspect]
     Indication: DEPRESSION
     Dosage: 50 MG, 1X/DAY
     Route: 048
     Dates: start: 20110110
  2. SYNTHROID [Concomitant]
     Indication: THYROID DISORDER
     Dosage: 100 UG, 1X/DAY
     Route: 048

REACTIONS (5)
  - NAUSEA [None]
  - CHILLS [None]
  - CONSTIPATION [None]
  - INFLUENZA LIKE ILLNESS [None]
  - DECREASED APPETITE [None]
